FAERS Safety Report 9762474 (Version 3)
Quarter: 2014Q2

REPORT INFORMATION
  Report Type: Spontaneous
  Country: US (occurrence: US)
  Receive Date: 20131216
  Receipt Date: 20140421
  Transmission Date: 20141212
  Serious: No
  Sender: FDA-Public Use
  Company Number: US-BIOGENIDEC-2013BI108213

PATIENT
  Age: 29 Year
  Sex: Female

DRUGS (2)
  1. TECFIDERA [Suspect]
     Indication: MULTIPLE SCLEROSIS
     Route: 048
     Dates: start: 20130905
  2. AMPYRA [Concomitant]
     Indication: MULTIPLE SCLEROSIS
     Route: 048

REACTIONS (3)
  - Overdose [Recovered/Resolved]
  - Creatinine renal clearance increased [Unknown]
  - Nausea [Recovered/Resolved]
